FAERS Safety Report 14964316 (Version 2)
Quarter: 2018Q2

REPORT INFORMATION
  Report Type: Spontaneous
  Country: FR (occurrence: FR)
  Receive Date: 20180601
  Receipt Date: 20180618
  Transmission Date: 20180711
  Serious: Yes (Hospitalization)
  Sender: FDA-Public Use
  Company Number: FR-JNJFOC-20180535907

PATIENT
  Age: 64 Year
  Sex: Male
  Weight: 86 kg

DRUGS (3)
  1. ASPEGIC [Concomitant]
     Active Substance: ASPIRIN DL-LYSINE
     Indication: PRODUCT USED FOR UNKNOWN INDICATION
     Route: 065
  2. ALOSTIL 5% [Suspect]
     Active Substance: MINOXIDIL
     Route: 061
  3. ALOSTIL 5% [Suspect]
     Active Substance: MINOXIDIL
     Indication: ALOPECIA
     Dosage: 7 SPRAYS TWICE, ONCE IN THE MORNING AND ONCE IN THE EVENING (USING THE DRUG FOR 20 YEARS)
     Route: 061
     Dates: start: 19980501, end: 20180524

REACTIONS (4)
  - Ear discomfort [Recovered/Resolved]
  - Sudden hearing loss [Recovered/Resolved]
  - Wrong technique in product usage process [Unknown]
  - Overdose [Unknown]

NARRATIVE: CASE EVENT DATE: 20171117
